FAERS Safety Report 6310102-0 (Version None)
Quarter: 2009Q3

REPORT INFORMATION
  Report Type: 
  Country: None (occurrence: None)
  Receive Date: 20090814
  Receipt Date: 20090804
  Transmission Date: 20100115
  Serious: Yes (Other)
  Sender: FDA-Public Use
  Company Number: US-JNJFOC-20090801994

PATIENT
  Age: 55 Year
  Sex: Female

DRUGS (1)
  1. NUCYNTA [Suspect]
     Indication: PAIN

REACTIONS (6)
  - ABNORMAL BEHAVIOUR [None]
  - AMNESIA [None]
  - DISORIENTATION [None]
  - FALL [None]
  - HALLUCINATION [None]
  - IRRITABILITY [None]
